FAERS Safety Report 13225380 (Version 1)
Quarter: 2017Q1

REPORT INFORMATION
  Report Type: Spontaneous
  Country: CN (occurrence: CN)
  Receive Date: 20170213
  Receipt Date: 20170213
  Transmission Date: 20170428
  Serious: Yes (Hospitalization)
  Sender: FDA-Public Use
  Company Number: CN-BAYER-2017-026205

PATIENT
  Age: 36 Year
  Sex: Female

DRUGS (2)
  1. MEDROL [Suspect]
     Active Substance: METHYLPREDNISOLONE
     Indication: PYREXIA
     Dosage: 1 DF, TID
     Route: 048
     Dates: start: 20160915, end: 20160915
  2. CLARITYNE 10 MG [Suspect]
     Active Substance: LORATADINE
     Indication: RASH
     Dosage: 1 DF, QD
     Route: 048
     Dates: start: 20160915, end: 20160916

REACTIONS (1)
  - Liver injury [Recovering/Resolving]

NARRATIVE: CASE EVENT DATE: 20160916
